FAERS Safety Report 7053514-2 (Version None)
Quarter: 2010Q4

REPORT INFORMATION
  Report Type: 
  Country: None (occurrence: None)
  Receive Date: 20101020
  Receipt Date: 20101012
  Transmission Date: 20110411
  Serious: No
  Sender: FDA-Public Use
  Company Number: US-PFIZER INC-2010129946

PATIENT
  Sex: Female

DRUGS (2)
  1. FLUCONAZOLE [Suspect]
     Dosage: UNK
  2. ZOLEDRONIC ACID [Suspect]
     Dosage: UNK
     Dates: start: 20100902

REACTIONS (1)
  - DRUG INEFFECTIVE [None]
